FAERS Safety Report 15372433 (Version 2)
Quarter: 2018Q4

REPORT INFORMATION
  Report Type: Spontaneous
  Country: BR (occurrence: BR)
  Receive Date: 20180911
  Receipt Date: 20181009
  Transmission Date: 20190204
  Serious: Yes (Hospitalization, Other)
  Sender: FDA-Public Use
  Company Number: BR-SA-2018SA242245

PATIENT
  Age: 59 Year
  Sex: Female
  Weight: 95 kg

DRUGS (2)
  1. NOVORAPID [Concomitant]
     Active Substance: INSULIN ASPART
     Dosage: 10 IU, QD
  2. LANTUS [Suspect]
     Active Substance: INSULIN GLARGINE
     Indication: DIABETES MELLITUS
     Dosage: 80 IU, QD

REACTIONS (4)
  - Eye disorder [Unknown]
  - Limb deformity [Unknown]
  - Hospitalisation [Unknown]
  - Cataract operation [Unknown]
